FAERS Safety Report 7134195-6 (Version None)
Quarter: 2010Q4

REPORT INFORMATION
  Report Type: 
  Country: None (occurrence: None)
  Receive Date: 20101203
  Receipt Date: 20101202
  Transmission Date: 20110411
  Serious: Yes (Other)
  Sender: FDA-Public Use
  Company Number: DE-SANOFI-AVENTIS-2010SA066965

PATIENT

DRUGS (2)
  1. MULTAQ [Suspect]
     Route: 065
  2. BETA BLOCKING AGENTS [Concomitant]
     Route: 065

REACTIONS (3)
  - ATRIAL FIBRILLATION [None]
  - DRUG LEVEL BELOW THERAPEUTIC [None]
  - HEART RATE INCREASED [None]
